FAERS Safety Report 5256504-5 (Version None)
Quarter: 2007Q1

REPORT INFORMATION
  Report Type: 
  Country: None (occurrence: None)
  Receive Date: 20061220
  Receipt Date: 20061018
  Transmission Date: 20070707
  Serious: Yes (Other)
  Sender: FDA-Public Use
  Company Number: 06-001198

PATIENT
  Age: 25 Year
  Sex: Female
  Weight: 55.8 kg

DRUGS (3)
  1. LOESTRIN 24 FE [Suspect]
     Indication: CONTRACEPTION
     Dosage: 20/1000 UG, QD, ORAL
     Route: 048
     Dates: start: 20060501, end: 20060720
  2. HUMALOG /00030501/ (INSULIN) [Concomitant]
  3. LANTUS [Concomitant]

REACTIONS (1)
  - TRANSIENT ISCHAEMIC ATTACK [None]
